FAERS Safety Report 25979753 (Version 2)
Quarter: 2025Q4

REPORT INFORMATION
  Report Type: Other
  Country: JP (occurrence: JP)
  Receive Date: 20251030
  Receipt Date: 20251121
  Transmission Date: 20260117
  Serious: Yes (Hospitalization)
  Sender: ESTEVE
  Company Number: JP-Esteve Pharmaceuticals SA-2187547

PATIENT
  Age: 76 Year
  Sex: Female

DRUGS (19)
  1. METOPIRONE [Suspect]
     Active Substance: METYRAPONE
     Indication: Cushing^s syndrome
  2. METYRAPONE [Suspect]
     Active Substance: METYRAPONE
  3. OSILODROSTAT [Concomitant]
     Active Substance: OSILODROSTAT
  4. SULFAMETHOXAZOLE\TRIMETHOPRIM [Concomitant]
     Active Substance: SULFAMETHOXAZOLE\TRIMETHOPRIM
  5. SULFAMETHOXAZOLE\TRIMETHOPRIM [Concomitant]
     Active Substance: SULFAMETHOXAZOLE\TRIMETHOPRIM
  6. PREDNISOLONE [Concomitant]
     Active Substance: PREDNISOLONE
  7. PREDNISOLONE [Concomitant]
     Active Substance: PREDNISOLONE
  8. PREDNISOLONE [Concomitant]
     Active Substance: PREDNISOLONE
  9. PREDNISOLONE [Concomitant]
     Active Substance: PREDNISOLONE
  10. PREDNISOLONE [Concomitant]
     Active Substance: PREDNISOLONE
  11. MINODRONIC ACID [Concomitant]
     Active Substance: MINODRONIC ACID
  12. ALFACALCIDOL [Concomitant]
     Active Substance: ALFACALCIDOL
  13. BROTIZOLAM [Concomitant]
     Active Substance: BROTIZOLAM
  14. AZILSARTAN KAMEDOXOMIL [Concomitant]
     Active Substance: AZILSARTAN KAMEDOXOMIL
  15. AMLODIPINE [Concomitant]
     Active Substance: AMLODIPINE BESYLATE
  16. ATORVASTATIN [Concomitant]
     Active Substance: ATORVASTATIN
  17. LEVOTHYROXINE [Concomitant]
     Active Substance: LEVOTHYROXINE
  18. METYRAPONE [Suspect]
     Active Substance: METYRAPONE
  19. METYRAPONE [Suspect]
     Active Substance: METYRAPONE

REACTIONS (1)
  - Pneumocystis jirovecii pneumonia [Recovered/Resolved]
